FAERS Safety Report 13226958 (Version 3)
Quarter: 2017Q3

REPORT INFORMATION
  Report Type: Spontaneous
  Country: US (occurrence: US)
  Receive Date: 20170213
  Receipt Date: 20170710
  Transmission Date: 20171127
  Serious: Yes (Other)
  Sender: FDA-Public Use
  Company Number: US-BAYER-2017-024873

PATIENT
  Age: 25 Year
  Sex: Female
  Weight: 66 kg

DRUGS (1)
  1. SKYLA [Suspect]
     Active Substance: LEVONORGESTREL
     Indication: CONTRACEPTION
     Dosage: 14 MCG/24HR, CONT
     Route: 015
     Dates: start: 20150212

REACTIONS (4)
  - Genital haemorrhage [None]
  - Drug ineffective [None]
  - Device difficult to use [None]
  - Pregnancy with contraceptive device [None]
